FAERS Safety Report 19652848 (Version 1)
Quarter: 2021Q3

REPORT INFORMATION
  Report Type: Spontaneous
  Country: AU (occurrence: AU)
  Receive Date: 20210803
  Receipt Date: 20210803
  Transmission Date: 20211014
  Serious: Yes (Death, Hospitalization, Other)
  Sender: FDA-Public Use
  Company Number: AU-SA-2021SA254993

PATIENT
  Age: 78 Year
  Sex: Female

DRUGS (3)
  1. DANAPAROID [Concomitant]
     Active Substance: DANAPAROID
  2. ENOXAPARIN SODIUM. [Suspect]
     Active Substance: ENOXAPARIN SODIUM
     Dosage: 100MG BD
     Dates: start: 20210526
  3. ASTRAZENECA COVID?19 VACCINE [Concomitant]
     Active Substance: AZD-1222
     Dosage: UNK
     Route: 030
     Dates: start: 20210325

REACTIONS (5)
  - Heparin-induced thrombocytopenia [Fatal]
  - Fibrin D dimer increased [Fatal]
  - Pulmonary embolism [Fatal]
  - Haemorrhage intracranial [Fatal]
  - Cerebral venous thrombosis [Fatal]

NARRATIVE: CASE EVENT DATE: 20210610
